FAERS Safety Report 9468504 (Version 2)
Quarter: 2013Q3

REPORT INFORMATION
  Report Type: Spontaneous
  Country: IT (occurrence: IT)
  Receive Date: 20130821
  Receipt Date: 20130827
  Transmission Date: 20140515
  Serious: Yes (Hospitalization)
  Sender: FDA-Public Use
  Company Number: IT-TEVA-425940ISR

PATIENT
  Age: 1 Year
  Sex: Male
  Weight: 13 kg

DRUGS (2)
  1. AMOXICILLINA TRIIDRATA/POTASSIO CLAVULANATO [Suspect]
     Indication: INFLUENZA
     Route: 048
     Dates: start: 20130629, end: 20130701
  2. PARACETAMOLO [Suspect]
     Indication: PYREXIA
     Dosage: 250 MILLIGRAM DAILY;
     Route: 054
     Dates: start: 20130628, end: 20130701

REACTIONS (3)
  - Diarrhoea [Unknown]
  - Musculoskeletal pain [Unknown]
  - Rash erythematous [Unknown]
